FAERS Safety Report 4654890-8 (Version None)
Quarter: 2005Q2

REPORT INFORMATION
  Report Type: 
  Country: None (occurrence: None)
  Receive Date: 20050506
  Receipt Date: 20040804
  Transmission Date: 20051028
  Serious: No
  Sender: FDA-Public Use
  Company Number: US-GLAXOSMITHKLINE-A0520955A

PATIENT
  Age: 67 Year
  Sex: Male

DRUGS (1)
  1. AMOXIL [Suspect]
     Indication: SKIN INFECTION
     Dosage: 500MG PER DAY
     Route: 048
     Dates: start: 20040803

REACTIONS (2)
  - ABDOMINAL DISCOMFORT [None]
  - PRURITUS [None]
